FAERS Safety Report 7256018-7 (Version None)
Quarter: 2011Q1

REPORT INFORMATION
  Report Type: 
  Country: None (occurrence: None)
  Receive Date: 20110129
  Receipt Date: 20100520
  Transmission Date: 20110831
  Serious: No
  Sender: FDA-Public Use
  Company Number: US-ABBOTT-10P-163-0646185-00

PATIENT
  Sex: Female
  Weight: 51.756 kg

DRUGS (6)
  1. IRON [Concomitant]
     Indication: ANAEMIA
  2. MIRALAX [Concomitant]
     Indication: CONSTIPATION
  3. HUMIRA [Suspect]
     Indication: CROHN'S DISEASE
     Dates: start: 20081219
  4. EPINEPHRINE [Concomitant]
     Indication: PRODUCT USED FOR UNKNOWN INDICATION
  5. ASACOL [Concomitant]
     Indication: CROHN'S DISEASE
  6. HYDROCODONE [Concomitant]
     Indication: PAIN

REACTIONS (1)
  - DRUG EFFECT DECREASED [None]
